FAERS Safety Report 7999654-2 (Version None)
Quarter: 2011Q4

REPORT INFORMATION
  Report Type: 
  Country: None (occurrence: None)
  Receive Date: 20111221
  Receipt Date: 20111213
  Transmission Date: 20120403
  Serious: Yes (Hospitalization)
  Sender: FDA-Public Use
  Company Number: JP-ASTRAZENECA-2011SE75166

PATIENT
  Age: 75 Year
  Sex: Male

DRUGS (7)
  1. LOSARTAN POTASSIUM AND HYDROCHLOROTHIAZIDE [Concomitant]
     Dosage: DOSE UNKNOWN
     Route: 048
  2. CELCIUM CHANNEL BLOCKER [Concomitant]
  3. DIURETICS [Concomitant]
  4. ALPHA-1 BLOLER [Concomitant]
  5. SYMBICORT [Suspect]
     Indication: ASTHMA
     Dosage: 2 DF TWO TIMES A DAY
     Route: 055
     Dates: start: 20101207
  6. INDERAL [Concomitant]
     Dosage: DOSE UNKNOWN
     Route: 048
  7. ANGIOTENSIN II RECEPTOR BLOCKER [Concomitant]

REACTIONS (1)
  - INTERSTITIAL LUNG DISEASE [None]
